FAERS Safety Report 6924370-5 (Version None)
Quarter: 2010Q3

REPORT INFORMATION
  Report Type: 
  Country: None (occurrence: None)
  Receive Date: 20100811
  Receipt Date: 20100811
  Transmission Date: 20110219
  Serious: Yes (Other)
  Sender: FDA-Public Use
  Company Number: None

PATIENT
  Sex: Male
  Weight: 108.8633 kg

DRUGS (2)
  1. METFORMIN HCL [Suspect]
     Indication: DIABETES MELLITUS
     Dosage: 500MG 2X DAILY ORAL
     Route: 048
     Dates: start: 20010101
  2. GLIMEPIRIDE [Concomitant]

REACTIONS (1)
  - FLANK PAIN [None]
